FAERS Safety Report 13170546 (Version 1)
Quarter: 2017Q1

REPORT INFORMATION
  Report Type: Spontaneous
  Country: NO (occurrence: NO)
  Receive Date: 20170201
  Receipt Date: 20170201
  Transmission Date: 20170428
  Serious: Yes (Hospitalization)
  Sender: FDA-Public Use
  Company Number: NO-ACCORD-047846

PATIENT
  Age: 76 Year
  Sex: Female

DRUGS (1)
  1. MONTELUKAST [Suspect]
     Active Substance: MONTELUKAST SODIUM
     Indication: ASTHMA
     Route: 048
     Dates: start: 20161116, end: 20161228

REACTIONS (3)
  - Rash [Recovering/Resolving]
  - Pruritus [Recovering/Resolving]
  - Blister infected [Unknown]

NARRATIVE: CASE EVENT DATE: 201612
